FAERS Safety Report 5991966-7 (Version None)
Quarter: 2008Q4

REPORT INFORMATION
  Report Type: 
  Country: None (occurrence: None)
  Receive Date: 20081211
  Receipt Date: 20081124
  Transmission Date: 20090506
  Serious: No
  Sender: FDA-Public Use
  Company Number: US-B.I. PHARMACEUTICALS,INC./RIDGEFIELD-2008-BP-17730BP

PATIENT
  Sex: Male

DRUGS (5)
  1. FLOMAX [Suspect]
     Indication: BENIGN PROSTATIC HYPERPLASIA
     Dosage: .4MG
     Route: 048
     Dates: start: 20081121
  2. ALLOPURINOL [Concomitant]
     Indication: GOUT
  3. PREDNISONE TAB [Concomitant]
     Indication: ADDISON'S DISEASE
  4. INDOCIN [Concomitant]
     Indication: GOUT
  5. FLORINEF [Concomitant]
     Indication: ADDISON'S DISEASE

REACTIONS (1)
  - DIARRHOEA [None]
